FAERS Safety Report 4637631-X (Version None)
Quarter: 2005Q2

REPORT INFORMATION
  Report Type: 
  Country: None (occurrence: None)
  Receive Date: 20050418
  Receipt Date: 20050408
  Transmission Date: 20051028
  Serious: Yes (Other)
  Sender: FDA-Public Use
  Company Number: US-GLAXOSMITHKLINE-A0553387A

PATIENT
  Age: 25 Year
  Sex: Male

DRUGS (2)
  1. WELLBUTRIN [Suspect]
     Indication: DEPRESSION
     Dosage: 150MG TWICE PER DAY
     Route: 048
     Dates: start: 20050328
  2. ASPIRIN [Concomitant]

REACTIONS (5)
  - ANXIETY [None]
  - FEELING OF DESPAIR [None]
  - HALLUCINATION [None]
  - MEDICATION ERROR [None]
  - SUICIDAL IDEATION [None]
